FAERS Safety Report 7548533-3 (Version None)
Quarter: 2011Q2

REPORT INFORMATION
  Report Type: 
  Country: None (occurrence: None)
  Receive Date: 20110608
  Receipt Date: 20110526
  Transmission Date: 20111010
  Serious: Yes (Other)
  Sender: FDA-Public Use
  Company Number: JP-2011-10757

PATIENT
  Age: 54 Year
  Sex: Male
  Weight: 58 kg

DRUGS (9)
  1. ATARAX [Concomitant]
  2. SOLANTAL (TIARAMIDE HYDROCHLORIDE) [Concomitant]
  3. URSO 250 [Concomitant]
  4. SAMSCA [Suspect]
     Dosage: 7.5 MG MILLIGRAM(S), QD, ORAL
     Route: 048
     Dates: start: 20110316, end: 20110317
  5. MUCODYNE (CARBOCISTEINE) [Concomitant]
  6. SOLDEM 3A (MAINTENANCE MEDIUM) [Concomitant]
  7. TORSEMIDE [Concomitant]
  8. ALLEGRA (FEXFENADINE HYDROCHLORIDE) [Concomitant]
  9. NIPOLAZIN (MEQUEITAZINE) [Concomitant]

REACTIONS (2)
  - ASPARTATE AMINOTRANSFERASE INCREASED [None]
  - LIVER DISORDER [None]
